FAERS Safety Report 5422663-4 (Version None)
Quarter: 2007Q3

REPORT INFORMATION
  Report Type: 
  Country: None (occurrence: None)
  Receive Date: 20070822
  Receipt Date: 20070817
  Transmission Date: 20080115
  Serious: Yes (Other)
  Sender: FDA-Public Use
  Company Number: FR-ROCHE-501377

PATIENT
  Age: 70 Year
  Sex: Female

DRUGS (2)
  1. BONIVA [Suspect]
     Indication: OSTEOPOROSIS
     Route: 048
     Dates: start: 20070601, end: 20070601
  2. NOLVADEX [Concomitant]
     Indication: BREAST CANCER
     Route: 048
     Dates: start: 20040101

REACTIONS (4)
  - BLISTER [None]
  - DYSPNOEA [None]
  - ERYTHEMA [None]
  - PRURITUS [None]
